FAERS Safety Report 8237252-6 (Version None)
Quarter: 2012Q1

REPORT INFORMATION
  Report Type: 
  Country: None (occurrence: None)
  Receive Date: 20120327
  Receipt Date: 20120327
  Transmission Date: 20120608
  Serious: No
  Sender: FDA-Public Use
  Company Number: None

PATIENT
  Sex: Male

DRUGS (1)
  1. ZYTIGA [Suspect]
     Indication: PROSTATE CANCER
     Dosage: 1000MG
     Route: 048
     Dates: start: 20120130, end: 20120326

REACTIONS (2)
  - PAIN IN EXTREMITY [None]
  - PAIN OF SKIN [None]
